FAERS Safety Report 12563390 (Version 2)
Quarter: 2016Q4

REPORT INFORMATION
  Report Type: Spontaneous
  Country: US (occurrence: US)
  Receive Date: 20160715
  Receipt Date: 20161019
  Transmission Date: 20170207
  Serious: No
  Sender: FDA-Public Use
  Company Number: US-ACTELION-A-US2016-138590

PATIENT
  Age: 59 Year
  Sex: Female

DRUGS (11)
  1. ADCIRCA [Concomitant]
     Active Substance: TADALAFIL
  2. EFFIENT [Concomitant]
     Active Substance: PRASUGREL HYDROCHLORIDE
  3. OMEPRAZOLE. [Concomitant]
     Active Substance: OMEPRAZOLE
  4. MAGNESIUM [Concomitant]
     Active Substance: MAGNESIUM
  5. PROGRAF [Concomitant]
     Active Substance: TACROLIMUS\TACROLIMUS ANHYDROUS
  6. VITAMIN C [Concomitant]
     Active Substance: ASCORBIC ACID
  7. LANTUS [Concomitant]
     Active Substance: INSULIN GLARGINE
  8. OPSUMIT [Suspect]
     Active Substance: MACITENTAN
     Indication: PULMONARY ARTERIAL HYPERTENSION
     Dosage: 10 MG, UNK
     Route: 048
     Dates: start: 20160526
  9. CALCIUM [Concomitant]
     Active Substance: CALCIUM
  10. NOVOLOG [Concomitant]
     Active Substance: INSULIN ASPART
  11. CRESTOR [Concomitant]
     Active Substance: ROSUVASTATIN CALCIUM

REACTIONS (2)
  - Peripheral swelling [Not Recovered/Not Resolved]
  - Inappropriate schedule of drug administration [Unknown]

NARRATIVE: CASE EVENT DATE: 20160601
